FAERS Safety Report 23844694 (Version 1)
Quarter: 2024Q2

REPORT INFORMATION
  Report Type: Spontaneous
  Country: US (occurrence: US)
  Receive Date: 20240511
  Receipt Date: 20240511
  Transmission Date: 20240716
  Serious: No
  Sender: FDA-Public Use
  Company Number: US-SA-2024SA141432

PATIENT
  Age: 37 Year
  Sex: Male

DRUGS (1)
  1. DUPIXENT [Suspect]
     Active Substance: DUPILUMAB
     Indication: Nasal polyps
     Dosage: 300 MG, QOW
     Route: 058
     Dates: start: 20240325

REACTIONS (7)
  - Migraine [Recovered/Resolved]
  - Visual impairment [Recovered/Resolved]
  - Ear infection [Recovering/Resolving]
  - Dry eye [Recovering/Resolving]
  - Ear discomfort [Recovering/Resolving]
  - Paranasal sinus hypersecretion [Recovering/Resolving]
  - Throat irritation [Recovering/Resolving]

NARRATIVE: CASE EVENT DATE: 20240401
